FAERS Safety Report 12900797 (Version 2)
Quarter: 2016Q4

REPORT INFORMATION
  Report Type: Report from Study
  Country: US (occurrence: US)
  Receive Date: 20161101
  Receipt Date: 20161110
  Transmission Date: 20170207
  Serious: Yes (Other)
  Sender: FDA-Public Use
  Company Number: US-MALLINCKRODT-T201605306

PATIENT
  Age: 70 Year
  Sex: Female

DRUGS (3)
  1. REPOSITORY CORTICOTROPIN INJECTION [Suspect]
     Active Substance: CORTICOTROPIN
     Indication: SYSTEMIC LUPUS ERYTHEMATOSUS
     Dosage: 80 UNITS/1ML, EVERY 3 DAY
     Route: 030
     Dates: start: 20161102
  2. REPOSITORY CORTICOTROPIN INJECTION [Suspect]
     Active Substance: CORTICOTROPIN
     Indication: ARTHRITIS
     Dosage: 80 UNITS, EVERY OTHER DAY FOR 2WEEKS
     Route: 030
     Dates: start: 20160922
  3. PREDNISONE. [Concomitant]
     Active Substance: PREDNISONE

REACTIONS (12)
  - Dysarthria [Unknown]
  - Mobility decreased [Unknown]
  - Blood pressure increased [Unknown]
  - Weight decreased [Unknown]
  - Dyspnoea [Unknown]
  - Gait disturbance [Unknown]
  - Ageusia [Unknown]
  - Fatigue [Unknown]
  - Urine output decreased [Unknown]
  - Fluid retention [Unknown]
  - Decreased appetite [Unknown]
  - Dry mouth [Unknown]

NARRATIVE: CASE EVENT DATE: 2016
